FAERS Safety Report 9018087 (Version 2)
Quarter: 2013Q2

REPORT INFORMATION
  Report Type: Spontaneous
  Country: DE (occurrence: DE)
  Receive Date: 20130117
  Receipt Date: 20130507
  Transmission Date: 20140414
  Serious: Yes (Hospitalization)
  Sender: FDA-Public Use
  Company Number: PHHY2013DE003595

PATIENT
  Age: 25 Year
  Sex: Male
  Weight: 53 kg

DRUGS (4)
  1. PREDNISOLONE [Suspect]
     Dosage: 50 MG, QD
  2. OXYCODONE [Concomitant]
     Dosage: 20 MG, BID
  3. VITAMIN D3 [Concomitant]
     Dosage: 40 MG, UNK
  4. PANTOZOL [Concomitant]

REACTIONS (14)
  - Congestive cardiomyopathy [Recovering/Resolving]
  - Cardio-respiratory distress [Recovering/Resolving]
  - Marasmus [Recovering/Resolving]
  - Gastrointestinal fistula [Recovering/Resolving]
  - Cardiovascular insufficiency [Recovering/Resolving]
  - Abdominal pain [Recovering/Resolving]
  - Adrenocortical insufficiency acute [Recovering/Resolving]
  - Asthenia [Recovering/Resolving]
  - Hyponatraemia [Recovering/Resolving]
  - Hypoglycaemia [Recovering/Resolving]
  - Hypotension [Recovering/Resolving]
  - Tachycardia [Recovering/Resolving]
  - Anal haemorrhage [Recovering/Resolving]
  - Pulmonary oedema [Recovering/Resolving]
